FAERS Safety Report 23311508 (Version 2)
Quarter: 2023Q4

REPORT INFORMATION
  Report Type: Spontaneous
  Country: US (occurrence: US)
  Receive Date: 20231219
  Receipt Date: 20231231
  Transmission Date: 20240109
  Serious: No
  Sender: FDA-Public Use
  Company Number: US-LUPIN PHARMACEUTICALS INC.-2023-11252

PATIENT

DRUGS (2)
  1. ALBUTEROL SULFATE [Suspect]
     Active Substance: ALBUTEROL SULFATE
     Indication: Asthma
     Dosage: UNK, 2 PUFFS EVERY 4-6 HOURS
  2. ALBUTEROL SULFATE [Suspect]
     Active Substance: ALBUTEROL SULFATE
     Dosage: UNK,2 PUFFS EVERY 4-6 HOURS
     Dates: start: 20231023

REACTIONS (5)
  - Wheezing [Unknown]
  - Cough [Unknown]
  - Drug dose omission by device [Unknown]
  - Product substitution issue [Unknown]
  - Device delivery system issue [Unknown]
